FAERS Safety Report 14538651 (Version 2)
Quarter: 2018Q3

REPORT INFORMATION
  Report Type: Spontaneous
  Country: FR (occurrence: FR)
  Receive Date: 20180216
  Receipt Date: 20180703
  Transmission Date: 20181010
  Serious: Yes (Other)
  Sender: FDA-Public Use
  Company Number: FR-MERCK KGAA-2042130

PATIENT
  Age: 57 Year
  Sex: Female
  Weight: 67 kg

DRUGS (2)
  1. NOVOTHYROX [Suspect]
     Active Substance: LEVOTHYROXINE SODIUM
     Indication: PRODUCT USED FOR UNKNOWN INDICATION
     Route: 048
     Dates: start: 201704, end: 201710
  2. EUTHYROX [Concomitant]
     Active Substance: LEVOTHYROXINE SODIUM
     Route: 048
     Dates: start: 201710

REACTIONS (23)
  - Abdominal distension [Recovering/Resolving]
  - Weight increased [Recovering/Resolving]
  - Balance disorder [Recovering/Resolving]
  - Disturbance in attention [Recovering/Resolving]
  - Breath odour [Recovering/Resolving]
  - Pruritus generalised [Recovering/Resolving]
  - Headache [Recovering/Resolving]
  - Myalgia [Recovering/Resolving]
  - Gait disturbance [Recovering/Resolving]
  - Palpitations [Recovering/Resolving]
  - Asthenia [Recovering/Resolving]
  - Breast enlargement [Recovering/Resolving]
  - Feeling abnormal [Recovering/Resolving]
  - Bowel movement irregularity [Recovering/Resolving]
  - Nervousness [Recovering/Resolving]
  - Renal pain [Recovering/Resolving]
  - Visual impairment [Recovering/Resolving]
  - Insomnia [Recovering/Resolving]
  - Blood thyroid stimulating hormone increased [Recovered/Resolved]
  - Negative thoughts [Recovering/Resolving]
  - Alopecia [Recovering/Resolving]
  - Pharyngeal oedema [Recovering/Resolving]
  - Hyperhidrosis [Recovering/Resolving]

NARRATIVE: CASE EVENT DATE: 201705
